FAERS Safety Report 10120748 (Version 1)
Quarter: 2014Q2

REPORT INFORMATION
  Report Type: Spontaneous
  Country: DE (occurrence: DE)
  Receive Date: 20140425
  Receipt Date: 20140425
  Transmission Date: 20141212
  Serious: Yes (Other)
  Sender: FDA-Public Use
  Company Number: DE-TEVA-477833USA

PATIENT
  Sex: Male

DRUGS (2)
  1. BENDAMUSTINE [Suspect]
     Indication: LYMPHOMA
     Route: 042
  2. RITUXIMAB [Suspect]
     Indication: LYMPHOMA

REACTIONS (2)
  - Dysphagia [Unknown]
  - Dysgeusia [Unknown]
